FAERS Safety Report 23520300 (Version 1)
Quarter: 2024Q1

REPORT INFORMATION
  Report Type: Spontaneous
  Country: US (occurrence: US)
  Receive Date: 20240214
  Receipt Date: 20240214
  Transmission Date: 20240410
  Serious: No
  Sender: FDA-Public Use
  Company Number: US-002147023-NVSC2024US030954

PATIENT

DRUGS (6)
  1. FEMARA [Suspect]
     Active Substance: LETROZOLE
     Indication: Metastasis
     Dosage: 2.5 MG
     Route: 065
  2. IBRANCE [Suspect]
     Active Substance: PALBOCICLIB
     Indication: Metastasis
     Dosage: 100 MG, 21D ( ONE CAPSULE PO DAILY DAYS 1-21, 7 DAYS OFF)
     Route: 048
  3. IBRANCE [Suspect]
     Active Substance: PALBOCICLIB
     Dosage: 145 MG, 21D (TAKE 1 CAPSULE BY MOUTH ONCE DAILY DAYS 1-21 OF A 28 DAY CYCLE)
     Route: 048
  4. AROMASIN [Suspect]
     Active Substance: EXEMESTANE
     Indication: Metastasis
     Dosage: 25 MG, QD
     Route: 048
  5. PALBOCICLIB [Suspect]
     Active Substance: PALBOCICLIB
     Indication: Product used for unknown indication
     Dosage: UNK
     Route: 065
  6. EXEMESTANE [Suspect]
     Active Substance: EXEMESTANE
     Indication: Product used for unknown indication
     Dosage: UNK
     Route: 065

REACTIONS (1)
  - Drug intolerance [Unknown]
